FAERS Safety Report 25609198 (Version 1)
Quarter: 2025Q3

REPORT INFORMATION
  Report Type: Spontaneous
  Country: US (occurrence: US)
  Receive Date: 20250727
  Receipt Date: 20250727
  Transmission Date: 20251021
  Serious: Yes (Death, Hospitalization, Other)
  Sender: DR REDDYS
  Company Number: US-DRL-USA-USA/2025/07/010851

PATIENT
  Age: 4 Decade
  Sex: Male

DRUGS (7)
  1. CLARITHROMYCIN [Suspect]
     Active Substance: CLARITHROMYCIN
     Indication: Lepromatous leprosy
  2. DOXYCYCLINE [Suspect]
     Active Substance: DOXYCYCLINE
     Indication: Multiple organ dysfunction syndrome
  3. MINOCYCLINE [Suspect]
     Active Substance: MINOCYCLINE HYDROCHLORIDE
     Indication: Lepromatous leprosy
     Dosage: 100 MG TABLET?DAILY
  4. MOXIFLOXACIN [Suspect]
     Active Substance: MOXIFLOXACIN
     Indication: Lepromatous leprosy
  5. PREDNISONE [Suspect]
     Active Substance: PREDNISONE
     Indication: Addison^s disease
  6. PIPERACILLIN SODIUM\TAZOBACTAM SODIUM [Concomitant]
     Active Substance: PIPERACILLIN SODIUM\TAZOBACTAM SODIUM
     Indication: Multiple organ dysfunction syndrome
  7. VANCOMYCIN [Concomitant]
     Active Substance: VANCOMYCIN
     Indication: Multiple organ dysfunction syndrome

REACTIONS (3)
  - Haemophagocytic lymphohistiocytosis [Fatal]
  - Histoplasmosis disseminated [Unknown]
  - Drug ineffective for unapproved indication [Unknown]
